FAERS Safety Report 19586324 (Version 1)
Quarter: 2021Q3

REPORT INFORMATION
  Report Type: Spontaneous
  Country: FR (occurrence: FR)
  Receive Date: 20210721
  Receipt Date: 20210721
  Transmission Date: 20211014
  Serious: Yes (Other)
  Sender: FDA-Public Use
  Company Number: FR-CADILA HEALTHCARE LIMITED-FR-ZYDUS-067872

PATIENT

DRUGS (10)
  1. VANCOMYCIN [Suspect]
     Active Substance: VANCOMYCIN
     Indication: OSTEITIS
     Dosage: UNK
     Route: 065
  2. PREDNISOLONE. [Suspect]
     Active Substance: PREDNISOLONE
     Dosage: 10 MILLIGRAM, QD, 1MG/KG/DAY
     Route: 048
  3. TRAMADOL. [Suspect]
     Active Substance: TRAMADOL
     Indication: OSTEITIS
     Dosage: UNK
     Route: 048
  4. PREDNISONE. [Suspect]
     Active Substance: PREDNISONE
     Indication: DRUG REACTION WITH EOSINOPHILIA AND SYSTEMIC SYMPTOMS
     Dosage: 1 MILLIGRAM PER KILOGRAM. INTERVAL ? QD
  5. NEFOPAM [Suspect]
     Active Substance: NEFOPAM
     Indication: OSTEITIS
     Dosage: UNK
     Route: 065
  6. GENTAMICIN. [Suspect]
     Active Substance: GENTAMICIN
     Indication: OSTEITIS
     Dosage: UNK
     Route: 065
  7. PREDNISOLONE. [Suspect]
     Active Substance: PREDNISOLONE
     Indication: DRUG REACTION WITH EOSINOPHILIA AND SYSTEMIC SYMPTOMS
     Dosage: 30 MILLIGRAM, QD, INITIAL 1 MG/KG/DAY; LATER 10 MG/DAY; 2 IV BOWLERS
     Route: 048
  8. PREDNISONE. [Suspect]
     Active Substance: PREDNISONE
     Dosage: 2 BOLUS OF IV PREDNISONE
     Route: 040
  9. PREDNISOLONE. [Suspect]
     Active Substance: PREDNISOLONE
     Dosage: 30MG/DAY
     Route: 048
  10. CEFTRIAXONE. [Suspect]
     Active Substance: CEFTRIAXONE
     Indication: OSTEITIS
     Dosage: UNK
     Route: 065

REACTIONS (28)
  - Renal tubular disorder [Recovered/Resolved]
  - Eosinophilia [Recovered/Resolved]
  - Myalgia [Unknown]
  - Basedow^s disease [Recovered/Resolved]
  - Acute kidney injury [Recovered/Resolved]
  - Human herpesvirus 6 infection reactivation [Recovering/Resolving]
  - Leukocytosis [Recovered/Resolved]
  - Drug eruption [Recovered/Resolved]
  - Arthralgia [Not Recovered/Not Resolved]
  - Chills [Unknown]
  - Dermatitis exfoliative generalised [Recovered/Resolved]
  - Skin disorder [Recovered/Resolved]
  - Palpitations [Unknown]
  - Face oedema [Recovered/Resolved]
  - Drug reaction with eosinophilia and systemic symptoms [Recovered/Resolved]
  - Pyrexia [Unknown]
  - Irritability [Unknown]
  - Hot flush [Unknown]
  - Tachycardia [Unknown]
  - General physical health deterioration [Recovered/Resolved]
  - Motor dysfunction [Unknown]
  - Decreased appetite [Unknown]
  - Hypotension [Recovered/Resolved]
  - Amenorrhoea [Unknown]
  - Asthenia [Unknown]
  - Hepatic cytolysis [Recovered/Resolved]
  - Jaundice cholestatic [Recovered/Resolved]
  - Lymphadenopathy [Recovered/Resolved]
